FAERS Safety Report 5257336-4 (Version None)
Quarter: 2007Q1

REPORT INFORMATION
  Report Type: 
  Country: None (occurrence: None)
  Receive Date: 20070307
  Receipt Date: 20070305
  Transmission Date: 20070707
  Serious: Yes (Other)
  Sender: FDA-Public Use
  Company Number: CH-JNJFOC-20070300690

PATIENT
  Age: 17 Year
  Sex: Female

DRUGS (2)
  1. REMICADE [Suspect]
     Indication: JUVENILE ARTHRITIS
     Dosage: 1ST INFUSION
     Route: 042
  2. METHOTREXATE [Suspect]
     Indication: JUVENILE ARTHRITIS
     Route: 058

REACTIONS (2)
  - ANOGENITAL WARTS [None]
  - PAPILLOMA VIRAL INFECTION [None]
